FAERS Safety Report 17717372 (Version 1)
Quarter: 2020Q2

REPORT INFORMATION
  Report Type: Spontaneous
  Country: US (occurrence: US)
  Receive Date: 20200428
  Receipt Date: 20200428
  Transmission Date: 20200714
  Serious: No
  Sender: FDA-Public Use
  Company Number: US-PFIZER INC-2020166523

PATIENT
  Age: 21 Year
  Sex: Female

DRUGS (6)
  1. FLONASE [Suspect]
     Active Substance: FLUTICASONE PROPIONATE
     Dosage: UNK
  2. MEDROL [Suspect]
     Active Substance: METHYLPREDNISOLONE
     Dosage: UNK
  3. BACTRIM [Suspect]
     Active Substance: SULFAMETHOXAZOLE\TRIMETHOPRIM
     Dosage: UNK
  4. ZONEGRAN [Suspect]
     Active Substance: ZONISAMIDE
     Dosage: UNK
  5. ROBAXIN [Suspect]
     Active Substance: METHOCARBAMOL
     Dosage: UNK
  6. DICLOFENAC [Suspect]
     Active Substance: DICLOFENAC
     Dosage: UNK

REACTIONS (1)
  - Drug hypersensitivity [Unknown]
